FAERS Safety Report 8622059-8 (Version None)
Quarter: 2012Q3

REPORT INFORMATION
  Report Type: 
  Country: None (occurrence: None)
  Receive Date: 20120825
  Receipt Date: 20120816
  Transmission Date: 20120928
  Serious: Yes (Other)
  Sender: FDA-Public Use
  Company Number: IT-ROCHE-1102494

PATIENT

DRUGS (2)
  1. MABTHERA [Suspect]
     Indication: NON-HODGKIN'S LYMPHOMA
     Route: 042
     Dates: start: 20120614, end: 20120814
  2. PENTOSTATIN [Concomitant]
     Route: 042
     Dates: start: 20120614, end: 20120814

REACTIONS (4)
  - CLONUS [None]
  - HYPOTENSION [None]
  - LOSS OF CONSCIOUSNESS [None]
  - HYPERHIDROSIS [None]
